FAERS Safety Report 23679568 (Version 1)
Quarter: 2024Q1

REPORT INFORMATION
  Report Type: Spontaneous
  Country: NL (occurrence: NL)
  Receive Date: 20240327
  Receipt Date: 20240327
  Transmission Date: 20240410
  Serious: Yes (Hospitalization)
  Sender: FDA-Public Use
  Company Number: None

PATIENT
  Age: 42 Year
  Sex: Female
  Weight: 80 kg

DRUGS (2)
  1. TERIFLUNOMIDE [Suspect]
     Active Substance: TERIFLUNOMIDE
     Indication: Multiple sclerosis
     Dosage: 14 MILLIGRAM, QD (1X DAILY 1 PIECE)
     Route: 065
     Dates: start: 20240120, end: 20240222
  2. COTRIMOXAZOLE [Suspect]
     Active Substance: SULFAMETHOXAZOLE\TRIMETHOPRIM
     Indication: Respiratory tract infection
     Dosage: 1 DOSAGE FORM, BID (2X DAILY, 960 TABLETS)
     Route: 065
     Dates: start: 20240219, end: 20240222

REACTIONS (3)
  - Hyperpyrexia [Recovering/Resolving]
  - Hepatic enzyme increased [Recovering/Resolving]
  - Product substitution issue [Unknown]
